FAERS Safety Report 7077976-X (Version None)
Quarter: 2010Q4

REPORT INFORMATION
  Report Type: 
  Country: None (occurrence: None)
  Receive Date: 20101101
  Receipt Date: 20101018
  Transmission Date: 20110411
  Serious: Yes (Other)
  Sender: FDA-Public Use
  Company Number: US-AMGEN-QUU405745

PATIENT

DRUGS (4)
  1. NPLATE [Suspect]
     Indication: IDIOPATHIC THROMBOCYTOPENIC PURPURA
     Dosage: 3 A?G/KG, UNK
     Dates: start: 20080912, end: 20090519
  2. IMMU-G [Concomitant]
     Dosage: UNK UNK, UNK
     Dates: start: 20080812
  3. CORTICOSTEROID NOS [Concomitant]
     Dosage: UNK UNK, UNK
     Dates: start: 20080811
  4. IMURAN [Concomitant]

REACTIONS (1)
  - THERAPEUTIC RESPONSE DECREASED [None]
